FAERS Safety Report 10259952 (Version 1)
Quarter: 2014Q2

REPORT INFORMATION
  Report Type: Spontaneous
  Country: US (occurrence: US)
  Receive Date: 20140625
  Receipt Date: 20140625
  Transmission Date: 20141212
  Serious: No
  Sender: FDA-Public Use
  Company Number: US-009507513-1406USA012196

PATIENT
  Sex: 0

DRUGS (3)
  1. CLARITIN CHEWABLE TABLETS [Suspect]
     Indication: EYE PRURITUS
     Dosage: UNK, UNKNOWN
     Route: 048
  2. CLARITIN CHEWABLE TABLETS [Suspect]
     Indication: SNEEZING
  3. CLARITIN CHEWABLE TABLETS [Suspect]
     Indication: NASAL CONGESTION

REACTIONS (1)
  - Condition aggravated [Unknown]
